FAERS Safety Report 4300023-7 (Version None)
Quarter: 2004Q1

REPORT INFORMATION
  Report Type: 
  Country: None (occurrence: None)
  Receive Date: 20040219
  Receipt Date: 20040219
  Transmission Date: 20041129
  Serious: Yes (Hospitalization)
  Sender: FDA-Public Use
  Company Number: None

PATIENT
  Age: 69 Year
  Sex: Male

DRUGS (4)
  1. NAPROXEN [Suspect]
     Dosage: 1 PO BID
     Route: 048
  2. ASPIRIN [Suspect]
     Dosage: 1 PO QD
     Route: 048
  3. FELODIPINE [Concomitant]
  4. RANITIDINE [Concomitant]

REACTIONS (2)
  - DIZZINESS [None]
  - RECTAL HAEMORRHAGE [None]
